FAERS Safety Report 6149523-8 (Version None)
Quarter: 2009Q2

REPORT INFORMATION
  Report Type: 
  Country: None (occurrence: None)
  Receive Date: 20090409
  Receipt Date: 20090402
  Transmission Date: 20091009
  Serious: Yes (Hospitalization)
  Sender: FDA-Public Use
  Company Number: US-BAXTER-2009BH005205

PATIENT
  Age: 36 Year
  Sex: Female
  Weight: 84 kg

DRUGS (5)
  1. GAMMAGARD LIQUID [Suspect]
     Indication: MYASTHENIA GRAVIS
     Route: 042
     Dates: start: 20081007, end: 20081010
  2. GAMMAGARD LIQUID [Suspect]
     Indication: OFF LABEL USE
     Route: 042
     Dates: start: 20081007, end: 20081010
  3. NEURONTIN [Concomitant]
  4. CELLCEPT [Concomitant]
  5. FIORICET [Concomitant]

REACTIONS (21)
  - ABDOMINAL PAIN UPPER [None]
  - ANAPHYLACTIC SHOCK [None]
  - BACK PAIN [None]
  - DIARRHOEA [None]
  - DIZZINESS [None]
  - DYSURIA [None]
  - HEADACHE [None]
  - HEART RATE INCREASED [None]
  - HYPERHIDROSIS [None]
  - HYPOAESTHESIA [None]
  - MENINGITIS ASEPTIC [None]
  - MUSCULOSKELETAL STIFFNESS [None]
  - NAUSEA [None]
  - OEDEMA PERIPHERAL [None]
  - PAIN IN EXTREMITY [None]
  - PALPITATIONS [None]
  - PRODUCTIVE COUGH [None]
  - PRURITUS [None]
  - PULMONARY OEDEMA [None]
  - RASH [None]
  - SENSATION OF PRESSURE [None]
